FAERS Safety Report 25936550 (Version 1)
Quarter: 2025Q4

REPORT INFORMATION
  Report Type: Spontaneous
  Country: TW (occurrence: TW)
  Receive Date: 20251017
  Receipt Date: 20251017
  Transmission Date: 20260117
  Serious: Yes (Other)
  Sender: ASTELLAS
  Company Number: TW-ASTELLAS-2025-AER-056850

PATIENT
  Sex: Male
  Weight: 70 kg

DRUGS (3)
  1. PADCEV [Suspect]
     Active Substance: ENFORTUMAB VEDOTIN-EJFV
     Indication: Transitional cell carcinoma
     Dosage: D1(DAY 1) AND D14(DAY 14) FOLLOWED A ONE-WEEK BREAK AS ONE CYCLE
     Route: 065
     Dates: start: 20250610
  2. PADCEV [Suspect]
     Active Substance: ENFORTUMAB VEDOTIN-EJFV
     Dosage: C6 D1(DAY 1) AND D21(DAY 21) FOLLOWED A ONE-WEEK BREAK AS ONE CYCLE, ONGOING
     Route: 065
     Dates: start: 2025
  3. PEMBROLIZUMAB [Concomitant]
     Active Substance: PEMBROLIZUMAB
     Indication: Transitional cell carcinoma
     Dosage: D1 AND D14
     Route: 065
     Dates: start: 20250610

REACTIONS (6)
  - Malignant neoplasm progression [Unknown]
  - Pruritus [Unknown]
  - Papule [Unknown]
  - Underdose [Unknown]
  - Off label use [Unknown]
  - Off label use [Unknown]

NARRATIVE: CASE EVENT DATE: 20250101
